FAERS Safety Report 23715349 (Version 1)
Quarter: 2024Q2

REPORT INFORMATION
  Report Type: Spontaneous
  Country: GB (occurrence: GB)
  Receive Date: 20240407
  Receipt Date: 20240407
  Transmission Date: 20240715
  Serious: Yes (Other)
  Sender: FDA-Public Use
  Company Number: None

PATIENT
  Age: 54 Year

DRUGS (12)
  1. RANOLAZINE [Suspect]
     Active Substance: RANOLAZINE
     Dosage: 1500 MG, QD
     Route: 065
  2. ESTRADIOL [Suspect]
     Active Substance: ESTRADIOL
     Route: 065
  3. GABAPENTIN [Suspect]
     Active Substance: GABAPENTIN
     Dosage: 2700 MG, QD
     Route: 065
  4. QUETIAPINE [Suspect]
     Active Substance: QUETIAPINE
     Dosage: AT NIGHT
     Route: 065
  5. QUETIAPINE [Suspect]
     Active Substance: QUETIAPINE
     Dosage: AT NIGHT
     Route: 065
  6. VENTOLIN [Concomitant]
     Active Substance: ALBUTEROL SULFATE
     Dosage: 200 UG (PUFFS 100 MICROGRAMS/DOSE) AS NECESSARY
     Route: 055
  7. Fostair nexthaler dry powder inhaler [Concomitant]
     Dosage: 400 UG/ 12 UG (200/6 MICROGRAMS TWICE A DAY)
     Route: 065
  8. CLOMIPRAMINE [Concomitant]
     Active Substance: CLOMIPRAMINE
     Dosage: 25 MG
     Route: 065
  9. CARBAMAZEPINE [Concomitant]
     Active Substance: CARBAMAZEPINE
     Dosage: TAKES 1 ON FOR SLEEP (NOT EPILEPTIC)
     Route: 065
     Dates: start: 20230220
  10. FEXOFENADINE [Concomitant]
     Active Substance: FEXOFENADINE HYDROCHLORIDE
     Route: 065
  11. MONTELUKAST [Concomitant]
     Active Substance: MONTELUKAST SODIUM
     Dosage: AT NIGHT
     Route: 065
  12. ESOMEPRAZOLE [Concomitant]
     Active Substance: ESOMEPRAZOLE
     Route: 065

REACTIONS (1)
  - Pancreatitis [Unknown]
